FAERS Safety Report 14763041 (Version 1)
Quarter: 2018Q2

REPORT INFORMATION
  Report Type: Spontaneous
  Country: None (occurrence: US)
  Receive Date: 20180416
  Receipt Date: 20180416
  Transmission Date: 20180711
  Serious: No
  Sender: FDA-Public Use
  Company Number: US-ALEMBIC PHARMACUETICALS LIMITED-2018SCAL000150

PATIENT

DRUGS (3)
  1. CLONAZEPAM. [Concomitant]
     Active Substance: CLONAZEPAM
     Indication: ANXIETY
     Dosage: 1 MG, BY MOUTH IN THE MORNING WITH PRISTIQ AND 1 TABLET AT NIGHT
     Route: 048
     Dates: start: 19970327
  2. DESVENLAFAXINE SUCCINATE. [Suspect]
     Active Substance: DESVENLAFAXINE SUCCINATE
     Indication: ANXIETY
     Dosage: 1 DF, BY MOUTH EVERY MORNING
     Route: 048
     Dates: start: 20171227, end: 20180106
  3. CLONAZEPAM. [Concomitant]
     Active Substance: CLONAZEPAM
     Indication: SLEEP DISORDER

REACTIONS (7)
  - Feeling abnormal [Unknown]
  - Irritability [Unknown]
  - Mood swings [Unknown]
  - Crying [Unknown]
  - Depressed mood [Unknown]
  - Anxiety [Unknown]
  - Withdrawal syndrome [Unknown]
